FAERS Safety Report 8095819-2 (Version None)
Quarter: 2012Q1

REPORT INFORMATION
  Report Type: 
  Country: None (occurrence: None)
  Receive Date: 20120129
  Receipt Date: 20111219
  Transmission Date: 20120608
  Serious: No
  Sender: FDA-Public Use
  Company Number: US-ABBOTT-11P-163-0886480-00

PATIENT
  Sex: Male
  Weight: 56.75 kg

DRUGS (3)
  1. HUMIRA [Suspect]
     Indication: CROHN'S DISEASE
     Route: 058
     Dates: start: 20100801
  2. UNKNOWN APPETITE STIMULANT [Concomitant]
     Indication: EATING DISORDER
  3. NEXIUM [Concomitant]
     Indication: GASTROOESOPHAGEAL REFLUX DISEASE

REACTIONS (9)
  - EATING DISORDER [None]
  - MOOD ALTERED [None]
  - INJECTION SITE PAIN [None]
  - TREMOR [None]
  - LOSS OF CONSCIOUSNESS [None]
  - DEPRESSION [None]
  - SYNCOPE [None]
  - STRESS [None]
  - WEIGHT DECREASED [None]
